FAERS Safety Report 21989581 (Version 1)
Quarter: 2023Q1

REPORT INFORMATION
  Report Type: Report from Study
  Country: US (occurrence: US)
  Receive Date: 20230214
  Receipt Date: 20230214
  Transmission Date: 20230418
  Serious: Yes (Other)
  Sender: FDA-Public Use
  Company Number: US-MYLANLABS-2023M1016267

PATIENT
  Age: 21 Year
  Sex: Male

DRUGS (3)
  1. FENOFIBRATE [Suspect]
     Active Substance: FENOFIBRATE
     Indication: Hypertriglyceridaemia
     Dosage: UNK
     Route: 065
  2. FENOFIBRATE [Suspect]
     Active Substance: FENOFIBRATE
     Indication: Toxicity to various agents
  3. PEGASPARGASE [Concomitant]
     Active Substance: PEGASPARGASE
     Indication: Neoplasm malignant
     Dosage: 3750 INTERNATIONAL UNIT
     Route: 065

REACTIONS (1)
  - Drug ineffective [Unknown]
